FAERS Safety Report 6645717-3 (Version None)
Quarter: 2010Q1

REPORT INFORMATION
  Report Type: 
  Country: None (occurrence: None)
  Receive Date: 20100318
  Receipt Date: 20100309
  Transmission Date: 20100710
  Serious: No
  Sender: FDA-Public Use
  Company Number: 528256

PATIENT
  Age: 45 Year
  Sex: Male
  Weight: 106.9 kg

DRUGS (4)
  1. HYDROMORPHONE HYDROCHLORIDE [Suspect]
     Indication: DRUG USE FOR UNKNOWN INDICATION
     Dosage: 1 MG, 1 DAY, INTRAVENOUS, 2 MG, 1 DAY, INTRAVENOUS
     Route: 042
     Dates: start: 20100126, end: 20100126
  2. HYDROMORPHONE HYDROCHLORIDE [Suspect]
     Indication: DRUG USE FOR UNKNOWN INDICATION
     Dosage: 1 MG, 1 DAY, INTRAVENOUS, 2 MG, 1 DAY, INTRAVENOUS
     Route: 042
     Dates: start: 20100126, end: 20100126
  3. HYDROMORPHONE HYDROCHLORIDE [Suspect]
     Indication: DRUG USE FOR UNKNOWN INDICATION
     Dosage: 1 MG, 1 DAY, INTRAVENOUS, 2 MG, 1 DAY, INTRAVENOUS
     Route: 042
     Dates: start: 20100126, end: 20100126
  4. ONDANSETRON [Concomitant]

REACTIONS (2)
  - INAPPROPRIATE SCHEDULE OF DRUG ADMINISTRATION [None]
  - RESPIRATORY ARREST [None]
